FAERS Safety Report 6566194-7 (Version None)
Quarter: 2010Q1

REPORT INFORMATION
  Report Type: 
  Country: None (occurrence: None)
  Receive Date: 20100202
  Receipt Date: 20100121
  Transmission Date: 20100710
  Serious: Yes (Hospitalization)
  Sender: FDA-Public Use
  Company Number: ES-PFIZER INC-2010008127

PATIENT
  Age: 75 Year
  Sex: Female

DRUGS (6)
  1. ALDACTONE [Suspect]
     Indication: OEDEMA
     Dosage: UNK
     Dates: start: 20090701, end: 20090908
  2. SEGURIL [Interacting]
     Indication: OEDEMA
     Dosage: 40 MG, 2X/DAY
     Route: 048
     Dates: start: 20090701, end: 20090908
  3. SINTROM [Concomitant]
     Indication: THROMBOSIS PROPHYLAXIS
     Dosage: UNK
     Dates: start: 19990101
  4. COROPRES [Concomitant]
     Indication: HYPERTENSION
     Dosage: UNK
     Dates: start: 20040101
  5. OMEPRAZOLE [Concomitant]
     Indication: PROPHYLAXIS AGAINST GASTROINTESTINAL ULCER
     Dosage: UNK
     Dates: start: 20080101, end: 20090908
  6. DIGOXIN [Concomitant]
     Indication: ATRIAL FIBRILLATION
     Dosage: UNK
     Dates: start: 19990101

REACTIONS (3)
  - DRUG INTERACTION [None]
  - ENCEPHALOPATHY [None]
  - HYPONATRAEMIA [None]
